FAERS Safety Report 5708220-0 (Version None)
Quarter: 2008Q2

REPORT INFORMATION
  Report Type: 
  Country: None (occurrence: None)
  Receive Date: 20080417
  Receipt Date: 20080401
  Transmission Date: 20081010
  Serious: Yes (Hospitalization)
  Sender: FDA-Public Use
  Company Number: US-BRISTOL-MYERS SQUIBB COMPANY-14133672

PATIENT
  Sex: Male
  Weight: 81 kg

DRUGS (2)
  1. DASATINIB [Suspect]
     Indication: NON-SMALL CELL LUNG CANCER
     Dates: start: 20071220, end: 20071223
  2. CETUXIMAB [Suspect]
     Indication: NON-SMALL CELL LUNG CANCER
     Dates: start: 20071221, end: 20071221

REACTIONS (4)
  - DYSPNOEA EXERTIONAL [None]
  - HYPONATRAEMIA [None]
  - PERICARDIAL EFFUSION [None]
  - RENAL FAILURE ACUTE [None]
